FAERS Safety Report 5894529-7 (Version None)
Quarter: 2008Q3

REPORT INFORMATION
  Report Type: 
  Country: None (occurrence: None)
  Receive Date: 20080922
  Receipt Date: 20080917
  Transmission Date: 20090109
  Serious: Yes (Death, Hospitalization, Other)
  Sender: FDA-Public Use
  Company Number: CLOF-1000271

PATIENT
  Sex: Female
  Weight: 53.6 kg

DRUGS (21)
  1. CLOFARABINE (CLOFARABINE) SOLUTION FOR INFUSION [Suspect]
     Indication: ACUTE LYMPHOCYTIC LEUKAEMIA
     Dosage: 62 MG, QD3, INTRAVENOUS, 31 MG, QD, INTRAVENOUS
     Route: 042
     Dates: start: 20080729, end: 20080731
  2. CLOFARABINE (CLOFARABINE) SOLUTION FOR INFUSION [Suspect]
     Indication: ACUTE LYMPHOCYTIC LEUKAEMIA
     Dosage: 62 MG, QD3, INTRAVENOUS, 31 MG, QD, INTRAVENOUS
     Route: 042
     Dates: start: 20080801, end: 20080802
  3. CYTARABINE [Suspect]
     Indication: ACUTE LYMPHOCYTIC LEUKAEMIA
     Dosage: 1.55 G, QDX3, INTRAVENOUS, 0.775 G, QD
     Route: 042
     Dates: start: 20080729, end: 20080731
  4. CYTARABINE [Suspect]
     Indication: ACUTE LYMPHOCYTIC LEUKAEMIA
     Dosage: 1.55 G, QDX3, INTRAVENOUS, 0.775 G, QD
     Route: 042
     Dates: start: 20080801, end: 20080802
  5. ACYCLOVIR [Concomitant]
  6. ALLOPURINOL [Concomitant]
  7. AMPHOTERICIN B [Concomitant]
  8. CALCIUM (CALCIUM) [Concomitant]
  9. CIPROFLOXACIN [Concomitant]
  10. ESOMEPRAZOLE MAGNESIUM [Concomitant]
  11. FLUCONAZOLE [Concomitant]
  12. KADIAN [Concomitant]
  13. LACTULOSE [Concomitant]
  14. MAGNESIUM OXIDE (MAGNESIUM OXIDE) [Concomitant]
  15. MEROPENEM (MEROPENEM) [Concomitant]
  16. MICAFUNGIN (MICAFUNGIN) [Concomitant]
  17. MORPHINE [Concomitant]
  18. NEULASTA [Concomitant]
  19. PREDNISONE [Concomitant]
  20. RISPERDAL [Concomitant]
  21. ZOFRAN [Concomitant]

REACTIONS (8)
  - AGITATION [None]
  - BLOOD PRESSURE DECREASED [None]
  - CONFUSIONAL STATE [None]
  - DYSPNOEA [None]
  - FATIGUE [None]
  - FEBRILE NEUTROPENIA [None]
  - HYPERBILIRUBINAEMIA [None]
  - PNEUMONITIS [None]
